FAERS Safety Report 23780132 (Version 2)
Quarter: 2024Q2

REPORT INFORMATION
  Report Type: Report from Study
  Country: CN (occurrence: CN)
  Receive Date: 20240424
  Receipt Date: 20240528
  Transmission Date: 20240716
  Serious: Yes (Other)
  Sender: FDA-Public Use
  Company Number: CN-TAKEDA-2024TUS023302

PATIENT
  Age: 53 Year
  Sex: Male
  Weight: 82 kg

DRUGS (2)
  1. BRENTUXIMAB VEDOTIN [Suspect]
     Active Substance: BRENTUXIMAB VEDOTIN
     Indication: Hodgkin^s disease
     Dosage: 150 MILLIGRAM, Q2WEEKS
     Route: 041
     Dates: start: 20240224
  2. BRENTUXIMAB VEDOTIN [Suspect]
     Active Substance: BRENTUXIMAB VEDOTIN
     Dosage: 150 MILLIGRAM, Q4WEEKS
     Route: 041

REACTIONS (3)
  - Myelosuppression [Unknown]
  - Hepatic function abnormal [Unknown]
  - Off label use [Unknown]

NARRATIVE: CASE EVENT DATE: 20240224
